FAERS Safety Report 23301003 (Version 1)
Quarter: 2023Q4

REPORT INFORMATION
  Report Type: Spontaneous
  Country: JP (occurrence: JP)
  Receive Date: 20231215
  Receipt Date: 20231215
  Transmission Date: 20240110
  Serious: Yes (Other)
  Sender: FDA-Public Use
  Company Number: JP-MYLANLABS-2023M1132055

PATIENT
  Age: 74 Year
  Sex: Male

DRUGS (6)
  1. CARBOPLATIN [Suspect]
     Active Substance: CARBOPLATIN
     Indication: Lung adenocarcinoma stage IV
     Dosage: 6 CYCLES
     Route: 065
  2. PACLITAXEL [Suspect]
     Active Substance: PACLITAXEL
     Indication: Lung adenocarcinoma stage IV
     Dosage: 6 CYCLES
     Route: 065
  3. ATEZOLIZUMAB [Suspect]
     Active Substance: ATEZOLIZUMAB
     Indication: Lung adenocarcinoma stage IV
     Dosage: 3 CYCLES OF ATEZOLIZUMAB 1200 MG/BODY
     Route: 065
  4. GIMERACIL\OTERACIL\TEGAFUR [Suspect]
     Active Substance: GIMERACIL\OTERACIL POTASSIUM\TEGAFUR
     Indication: Lung adenocarcinoma stage IV
     Dosage: 8 CYCLES; ONE CYCLE OVER 21 DAYS
     Route: 065
  5. SOTORASIB [Suspect]
     Active Substance: SOTORASIB
     Indication: Lung adenocarcinoma stage IV
     Dosage: 960 MILLIGRAM, QD
     Route: 065
  6. SOTORASIB [Suspect]
     Active Substance: SOTORASIB
     Dosage: DOSE REDUCED
     Route: 065

REACTIONS (1)
  - Drug ineffective [Unknown]
